FAERS Safety Report 6531122-7 (Version None)
Quarter: 2010Q1

REPORT INFORMATION
  Report Type: 
  Country: None (occurrence: None)
  Receive Date: 20100108
  Receipt Date: 20091228
  Transmission Date: 20100710
  Serious: No
  Sender: FDA-Public Use
  Company Number: US-B.I. PHARMACEUTICALS,INC./RIDGEFIELD-2009-BP-14948BP

PATIENT
  Sex: Male

DRUGS (6)
  1. SPIRIVA [Suspect]
     Indication: CHRONIC OBSTRUCTIVE PULMONARY DISEASE
     Dosage: 18 MCG
     Route: 055
     Dates: start: 20070101
  2. COMBIVENT [Concomitant]
     Indication: CHRONIC OBSTRUCTIVE PULMONARY DISEASE
  3. GLUCOSAMINE CHONDROTIN [Concomitant]
     Indication: OSTEOPENIA
  4. VITAMIN D3 [Concomitant]
  5. OSTEOHERB [Concomitant]
  6. CALCIUM [Concomitant]

REACTIONS (2)
  - COUGH [None]
  - DYSPNOEA [None]
